FAERS Safety Report 11823142 (Version 1)
Quarter: 2015Q4

REPORT INFORMATION
  Report Type: Spontaneous
  Country: ZA (occurrence: ZA)
  Receive Date: 20151210
  Receipt Date: 20151210
  Transmission Date: 20160305
  Serious: Yes (Other)
  Sender: FDA-Public Use
  Company Number: ZA-PFIZER INC-2015381058

PATIENT
  Age: 64 Year
  Sex: Female

DRUGS (2)
  1. STRADEXA [Concomitant]
     Indication: BREAST CANCER
     Dosage: 1 MG, DAILY
     Route: 048
     Dates: start: 20150803
  2. SUTENT [Suspect]
     Active Substance: SUNITINIB MALATE
     Indication: RENAL CANCER METASTATIC
     Dosage: 50 MG, DAILY
     Route: 048
     Dates: start: 20150629, end: 20151018

REACTIONS (1)
  - Wound dehiscence [Recovered/Resolved]

NARRATIVE: CASE EVENT DATE: 20151025
